FAERS Safety Report 7043056-2 (Version None)
Quarter: 2010Q3

REPORT INFORMATION
  Report Type: 
  Country: None (occurrence: None)
  Receive Date: 20100929
  Receipt Date: 20100604
  Transmission Date: 20110219
  Serious: No
  Sender: FDA-Public Use
  Company Number: US-WYE-H15530810

PATIENT
  Age: 61 Year
  Sex: Female
  Weight: 74.46 kg

DRUGS (13)
  1. PRISTIQ [Suspect]
     Indication: ANXIETY
     Dosage: SEE IMAGE
     Route: 048
     Dates: start: 20090815, end: 20090816
  2. PRISTIQ [Suspect]
     Indication: BIPOLAR DISORDER
     Dosage: SEE IMAGE
     Route: 048
     Dates: start: 20090815, end: 20090816
  3. PRISTIQ [Suspect]
     Indication: DEPRESSION
     Dosage: SEE IMAGE
     Route: 048
     Dates: start: 20090815, end: 20090816
  4. PRISTIQ [Suspect]
     Indication: ANXIETY
     Dosage: SEE IMAGE
     Route: 048
     Dates: start: 20090817, end: 20090901
  5. PRISTIQ [Suspect]
     Indication: BIPOLAR DISORDER
     Dosage: SEE IMAGE
     Route: 048
     Dates: start: 20090817, end: 20090901
  6. PRISTIQ [Suspect]
     Indication: DEPRESSION
     Dosage: SEE IMAGE
     Route: 048
     Dates: start: 20090817, end: 20090901
  7. PRISTIQ [Suspect]
     Indication: ANXIETY
     Dosage: SEE IMAGE
     Route: 048
     Dates: start: 20090901, end: 20100201
  8. PRISTIQ [Suspect]
     Indication: BIPOLAR DISORDER
     Dosage: SEE IMAGE
     Route: 048
     Dates: start: 20090901, end: 20100201
  9. PRISTIQ [Suspect]
     Indication: DEPRESSION
     Dosage: SEE IMAGE
     Route: 048
     Dates: start: 20090901, end: 20100201
  10. PRISTIQ [Suspect]
     Indication: ANXIETY
     Dosage: SEE IMAGE
     Route: 048
     Dates: start: 20100201
  11. PRISTIQ [Suspect]
     Indication: BIPOLAR DISORDER
     Dosage: SEE IMAGE
     Route: 048
     Dates: start: 20100201
  12. PRISTIQ [Suspect]
     Indication: DEPRESSION
     Dosage: SEE IMAGE
     Route: 048
     Dates: start: 20100201
  13. LAMICTAL [Concomitant]

REACTIONS (7)
  - ALTERED VISUAL DEPTH PERCEPTION [None]
  - BALANCE DISORDER [None]
  - CLUMSINESS [None]
  - COORDINATION ABNORMAL [None]
  - FALL [None]
  - FOOT DEFORMITY [None]
  - GAIT DISTURBANCE [None]
